FAERS Safety Report 14145035 (Version 1)
Quarter: 2017Q4

REPORT INFORMATION
  Report Type: Spontaneous
  Country: AU (occurrence: AU)
  Receive Date: 20171031
  Receipt Date: 20171031
  Transmission Date: 20180321
  Serious: Yes (Life-Threatening, Other)
  Sender: FDA-Public Use
  Company Number: PHHY2017AU154999

PATIENT
  Age: 13 Year
  Sex: Female

DRUGS (3)
  1. OMEPRAZOLE. [Suspect]
     Active Substance: OMEPRAZOLE
     Indication: EPIGLOTTITIS
     Dosage: UNK
     Route: 065
  2. PREDNISOLONE. [Concomitant]
     Active Substance: PREDNISOLONE
     Indication: EPIGLOTTITIS
     Dosage: UNK
     Route: 048
  3. HYDROXYCHLOROQUINE [Suspect]
     Active Substance: HYDROXYCHLOROQUINE
     Indication: EPIGLOTTITIS
     Dosage: 400 MG, UNK
     Route: 065
     Dates: start: 20170318

REACTIONS (3)
  - Oral disorder [Unknown]
  - Genital lesion [Unknown]
  - Toxic epidermal necrolysis [Unknown]
